FAERS Safety Report 8399989-8 (Version None)
Quarter: 2012Q2

REPORT INFORMATION
  Report Type: 
  Country: None (occurrence: None)
  Receive Date: 20120525
  Receipt Date: 20120509
  Transmission Date: 20120825
  Serious: Yes (Death)
  Sender: FDA-Public Use
  Company Number: CRC-12-189

PATIENT
  Age: 56 Year
  Sex: Male

DRUGS (2)
  1. OXALIPLATIN [Suspect]
     Indication: COLON CANCER METASTATIC
     Dosage: 240MG THRICE WEEKLY; IV
     Route: 042
     Dates: start: 20100101
  2. CAPECITABINE [Suspect]
     Indication: COLON CANCER METASTATIC
     Dosage: 1500MG THRICE DAILY; ORAL
     Route: 048
     Dates: start: 20100101

REACTIONS (14)
  - LIVER FUNCTION TEST ABNORMAL [None]
  - CYTOTOXIC OEDEMA [None]
  - NAUSEA [None]
  - HYPOPHAGIA [None]
  - SOMNOLENCE [None]
  - ABDOMINAL PAIN [None]
  - STATUS EPILEPTICUS [None]
  - ENCEPHALOPATHY [None]
  - LETHARGY [None]
  - HYPERTENSION [None]
  - RENAL IMPAIRMENT [None]
  - DECREASED APPETITE [None]
  - WEIGHT DECREASED [None]
  - GRAND MAL CONVULSION [None]
